FAERS Safety Report 16010013 (Version 1)
Quarter: 2019Q1

REPORT INFORMATION
  Report Type: Report from Study
  Country: None (occurrence: CA)
  Receive Date: 20190225
  Receipt Date: 20190225
  Transmission Date: 20190418
  Serious: Yes (Hospitalization)
  Sender: FDA-Public Use
  Company Number: CA-ABBVIE-19K-028-2663938-00

PATIENT
  Sex: Female

DRUGS (1)
  1. HUMIRA [Suspect]
     Active Substance: ADALIMUMAB
     Indication: UVEITIS
     Route: 058
     Dates: start: 20190114, end: 201901

REACTIONS (3)
  - Vision blurred [Not Recovered/Not Resolved]
  - Device occlusion [Unknown]
  - Device allergy [Not Recovered/Not Resolved]

NARRATIVE: CASE EVENT DATE: 2019
